FAERS Safety Report 12230176 (Version 1)
Quarter: 2016Q1

REPORT INFORMATION
  Report Type: Spontaneous
  Country: US (occurrence: None)
  Receive Date: 20160331
  Receipt Date: 20160331
  Transmission Date: 20160526
  Serious: Yes (Other)
  Sender: FDA-Public Use
  Company Number: None

PATIENT
  Age: 10 Year
  Sex: Male

DRUGS (16)
  1. BUDESONIDE. [Concomitant]
     Active Substance: BUDESONIDE
  2. AQUADEKS [Concomitant]
     Active Substance: MINERALS\VITAMINS
  3. PULMICORT TURBUHALER [Concomitant]
     Active Substance: BUDESONIDE
  4. REVATIO [Suspect]
     Active Substance: SILDENAFIL CITRATE
     Indication: CYSTIC FIBROSIS
     Route: 048
     Dates: start: 20150801
  5. ALBUTEROL. [Concomitant]
     Active Substance: ALBUTEROL
  6. CREON [Concomitant]
     Active Substance: PANCRELIPASE AMYLASE\PANCRELIPASE LIPASE\PANCRELIPASE PROTEASE
  7. PULMOZYME [Concomitant]
     Active Substance: DORNASE ALFA
  8. SODIUM CHLOR [Concomitant]
  9. CAYSTON [Concomitant]
     Active Substance: AZTREONAM
  10. FLORANEX [Concomitant]
     Active Substance: LACTOBACILLUS ACIDOPHILUS\LACTOBACILLUS DELBRUECKII SUBSP. BULGARICUS
  11. METHADONE [Concomitant]
     Active Substance: METHADONE HYDROCHLORIDE
  12. D3 MAX ST [Concomitant]
  13. SILDENAFIL. [Concomitant]
     Active Substance: SILDENAFIL
  14. MORPHINE [Concomitant]
     Active Substance: MORPHINE
  15. POT CHLORIDE [Concomitant]
     Active Substance: POTASSIUM CHLORIDE
  16. CIPROFLOXACN [Concomitant]
     Active Substance: CIPROFLOXACIN

REACTIONS (2)
  - Disease progression [None]
  - Mechanical ventilation [None]

NARRATIVE: CASE EVENT DATE: 201601
